FAERS Safety Report 5278600-9 (Version None)
Quarter: 2007Q1

REPORT INFORMATION
  Report Type: 
  Country: None (occurrence: None)
  Receive Date: 20070328
  Receipt Date: 20070327
  Transmission Date: 20070707
  Serious: Yes (Hospitalization)
  Sender: FDA-Public Use
  Company Number: US-GLAXOSMITHKLINE-A0644718A

PATIENT
  Age: 51 Year
  Sex: Female
  Weight: 82.3 kg

DRUGS (2)
  1. LAPATINIB [Suspect]
     Dosage: 1250MG PER DAY
     Route: 048
     Dates: start: 20070310
  2. CAPECITABINE [Suspect]
     Dosage: 3500MG PER DAY
     Route: 048
     Dates: start: 20070310

REACTIONS (4)
  - DEHYDRATION [None]
  - DIARRHOEA [None]
  - NAUSEA [None]
  - ORAL INTAKE REDUCED [None]
